FAERS Safety Report 4697974-0 (Version None)
Quarter: 2005Q2

REPORT INFORMATION
  Report Type: 
  Country: None (occurrence: None)
  Receive Date: 20050621
  Receipt Date: 20050621
  Transmission Date: 20051028
  Serious: Yes (Other)
  Sender: FDA-Public Use
  Company Number: None

PATIENT
  Sex: Female
  Weight: 70.9 kg

DRUGS (2)
  1. CYTARABINE [Suspect]
     Indication: ACUTE MYELOID LEUKAEMIA
     Dosage: 100 MG/M2/DAY BY CIV ON DAYS 1-7
     Route: 042
     Dates: start: 20050408
  2. DAUNORUBICIN [Suspect]
     Dosage: 60 MG/M2/DAY BY IVP ON DAYS 1-3
     Route: 042

REACTIONS (7)
  - ARTHRITIS BACTERIAL [None]
  - BACTERIAL INFECTION [None]
  - BLOOD CULTURE POSITIVE [None]
  - CHILLS [None]
  - OSTEOARTHRITIS [None]
  - PYREXIA [None]
  - SHOULDER PAIN [None]
